FAERS Safety Report 25788945 (Version 3)
Quarter: 2025Q4

REPORT INFORMATION
  Report Type: Report from Study
  Country: AR (occurrence: AR)
  Receive Date: 20250911
  Receipt Date: 20251028
  Transmission Date: 20260117
  Serious: Yes (Other)
  Sender: NOVARTIS
  Company Number: AR-002147023-NVSC2025AR001000

PATIENT
  Age: 32 Year
  Sex: Male

DRUGS (4)
  1. KESIMPTA [Suspect]
     Active Substance: OFATUMUMAB
     Indication: Multiple sclerosis
     Dosage: 20 MG, QW
     Route: 058
     Dates: start: 20241228
  2. KESIMPTA [Suspect]
     Active Substance: OFATUMUMAB
     Dosage: UNK, QMO
     Route: 065
  3. KESIMPTA [Suspect]
     Active Substance: OFATUMUMAB
     Dosage: UNK
     Route: 065
  4. ACETAMINOPHEN [Concomitant]
     Active Substance: ACETAMINOPHEN
     Indication: Product used for unknown indication
     Dosage: UNK
     Route: 065

REACTIONS (11)
  - Blindness transient [Recovered/Resolved]
  - Pyrexia [Recovered/Resolved]
  - Chest pain [Unknown]
  - Neck pain [Unknown]
  - Headache [Unknown]
  - Malaise [Not Recovered/Not Resolved]
  - Injection site pain [Unknown]
  - Blood pressure decreased [Unknown]
  - Asthenia [Unknown]
  - Cold sweat [Unknown]
  - Listless [Unknown]

NARRATIVE: CASE EVENT DATE: 20241228
